FAERS Safety Report 19884800 (Version 1)
Quarter: 2021Q3

REPORT INFORMATION
  Report Type: Spontaneous
  Country: JP (occurrence: JP)
  Receive Date: 20210927
  Receipt Date: 20210927
  Transmission Date: 20211014
  Serious: Yes (Hospitalization, Other)
  Sender: FDA-Public Use
  Company Number: JP-AMGEN-JPNSP2021148608

PATIENT
  Age: 65 Year
  Sex: Male
  Weight: 102 kg

DRUGS (4)
  1. VECTIBIX [Suspect]
     Active Substance: PANITUMUMAB
     Indication: COLON CANCER
     Dosage: 550 MILLIGRAM
     Route: 041
     Dates: start: 20210811, end: 20210811
  2. IRINOTECAN HYDROCHLORIDE. [Suspect]
     Active Substance: IRINOTECAN HYDROCHLORIDE
     Indication: HEPATIC CANCER METASTATIC
     Dosage: UNK UNK, UNK
     Route: 065
  3. IRINOTECAN HYDROCHLORIDE. [Suspect]
     Active Substance: IRINOTECAN HYDROCHLORIDE
     Indication: COLON CANCER
     Dosage: 250 MILLIGRAM
     Route: 041
     Dates: start: 20210811, end: 20210811
  4. VECTIBIX [Suspect]
     Active Substance: PANITUMUMAB
     Indication: HEPATIC CANCER METASTATIC
     Dosage: UNK
     Route: 065

REACTIONS (6)
  - Febrile neutropenia [Recovering/Resolving]
  - Septic shock [Unknown]
  - Dehydration [Unknown]
  - Sepsis [Unknown]
  - Dysstasia [Unknown]
  - Renal impairment [Unknown]

NARRATIVE: CASE EVENT DATE: 20210823
